FAERS Safety Report 17765228 (Version 1)
Quarter: 2020Q2

REPORT INFORMATION
  Report Type: Spontaneous
  Country: US (occurrence: US)
  Receive Date: 20200508
  Receipt Date: 20200508
  Transmission Date: 20200714
  Serious: No
  Sender: FDA-Public Use
  Company Number: None

PATIENT
  Age: 65 Year
  Sex: Female
  Weight: 90 kg

DRUGS (11)
  1. ZOLPIDEM [Concomitant]
     Active Substance: ZOLPIDEM TARTRATE
  2. FOLIC ACID. [Concomitant]
     Active Substance: FOLIC ACID
  3. ARTIFICIAL KNEE JOINT [Concomitant]
  4. FLAXSEED OIL WITH OMEGA 3 [Concomitant]
  5. VENLAFAXINE [Concomitant]
     Active Substance: VENLAFAXINE HYDROCHLORIDE
  6. ZOLPIDEM TABLET 10MG [Suspect]
     Active Substance: ZOLPIDEM TARTRATE
     Indication: INSOMNIA
     Dosage: ?          QUANTITY:1.5 TABLET(S);?
     Route: 048
  7. LISINIPRIL [Concomitant]
     Active Substance: LISINOPRIL
  8. ADVIL [Concomitant]
     Active Substance: IBUPROFEN
  9. TYLENOL [Concomitant]
     Active Substance: ACETAMINOPHEN
  10. LORAZAPAM [Concomitant]
     Active Substance: LORAZEPAM
  11. VITAMIN D3 [Concomitant]
     Active Substance: CHOLECALCIFEROL

REACTIONS (2)
  - Product substitution issue [None]
  - Drug ineffective [None]

NARRATIVE: CASE EVENT DATE: 20200501
